FAERS Safety Report 8454273-9 (Version None)
Quarter: 2012Q2

REPORT INFORMATION
  Report Type: 
  Country: None (occurrence: None)
  Receive Date: 20120620
  Receipt Date: 20120613
  Transmission Date: 20120825
  Serious: No
  Sender: FDA-Public Use
  Company Number: US-B.I. PHARMACEUTICALS,INC./RIDGEFIELD-2012-BP-13666BP

PATIENT
  Sex: Female

DRUGS (5)
  1. LIPITOR [Concomitant]
     Indication: BLOOD CHOLESTEROL INCREASED
  2. MULTAQ [Concomitant]
     Indication: ATRIAL FIBRILLATION
     Dates: start: 20120603
  3. LORAZEPAM [Concomitant]
     Indication: ANXIETY
  4. SYNTHROID [Concomitant]
     Indication: HYPOTHYROIDISM
  5. PRADAXA [Suspect]
     Indication: ATRIAL FIBRILLATION
     Dosage: 150 MG
     Route: 048
     Dates: start: 20120607, end: 20120609

REACTIONS (1)
  - CHEST PAIN [None]
